FAERS Safety Report 5954917-7 (Version None)
Quarter: 2008Q4

REPORT INFORMATION
  Report Type: 
  Country: None (occurrence: None)
  Receive Date: 20081113
  Receipt Date: 20081113
  Transmission Date: 20090506
  Serious: Yes (Disabling, Other)
  Sender: FDA-Public Use
  Company Number: None

PATIENT
  Age: 61 Year
  Sex: Female
  Weight: 91.6266 kg

DRUGS (1)
  1. RECLAST [Suspect]
     Indication: BONE DISORDER
     Dosage: 1X YEAR IV DRIP
     Route: 041
     Dates: start: 20081022, end: 20081022

REACTIONS (9)
  - ARTHRALGIA [None]
  - BODY TEMPERATURE INCREASED [None]
  - BONE PAIN [None]
  - DEHYDRATION [None]
  - FEELING ABNORMAL [None]
  - HEART RATE INCREASED [None]
  - MYALGIA [None]
  - PAIN [None]
  - VOMITING [None]
